FAERS Safety Report 9748233 (Version 1)
Quarter: 2013Q4

REPORT INFORMATION
  Report Type: Report from Study
  Country: AT (occurrence: AT)
  Receive Date: 20131212
  Receipt Date: 20131212
  Transmission Date: 20140711
  Serious: Yes (Other)
  Sender: FDA-Public Use
  Company Number: AT-ROCHE-1311878

PATIENT
  Age: 51 Year
  Sex: Female
  Weight: 79 kg

DRUGS (1)
  1. TOCILIZUMAB [Suspect]
     Indication: RHEUMATOID ARTHRITIS
     Route: 065

REACTIONS (5)
  - Neurolysis [Recovered/Resolved]
  - Impaired healing [Recovered/Resolved]
  - Vertigo [Recovered/Resolved]
  - Oral herpes [Recovered/Resolved]
  - Transaminases increased [Not Recovered/Not Resolved]
